FAERS Safety Report 7428530-9 (Version None)
Quarter: 2011Q2

REPORT INFORMATION
  Report Type: 
  Country: None (occurrence: None)
  Receive Date: 20110421
  Receipt Date: 20110413
  Transmission Date: 20111010
  Serious: Yes (Hospitalization)
  Sender: FDA-Public Use
  Company Number: US-B.I. PHARMACEUTICALS,INC./RIDGEFIELD-2011-BP-08003BP

PATIENT
  Sex: Male

DRUGS (7)
  1. PRADAXA [Suspect]
     Indication: ATRIAL FIBRILLATION
     Dosage: 300 MG
     Route: 048
  2. ASPIRIN [Concomitant]
     Dosage: 81 MG
  3. PROSCAR [Concomitant]
     Dosage: 5 MG
  4. SIMVASTATIN [Concomitant]
     Dosage: 20 MG
  5. GLUCOSAMINE [Concomitant]
     Dosage: 1000 MG
  6. LOVAZA [Concomitant]
     Dosage: 1000 MG
  7. ALBUTEROL [Concomitant]

REACTIONS (1)
  - DYSPNOEA [None]
